FAERS Safety Report 4987978-2 (Version None)
Quarter: 2006Q2

REPORT INFORMATION
  Report Type: 
  Country: None (occurrence: None)
  Receive Date: 20060424
  Receipt Date: 20060411
  Transmission Date: 20061013
  Serious: Yes (Hospitalization)
  Sender: FDA-Public Use
  Company Number: HQWYE607831MAR06

PATIENT
  Age: 46 Year
  Sex: Female

DRUGS (5)
  1. RAPAMUNE [Suspect]
     Indication: PROPHYLAXIS AGAINST TRANSPLANT REJECTION
     Dosage: 5 MG 1X PER 1 DAY ORAL
     Route: 048
     Dates: start: 20050518, end: 20060410
  2. AZATHIOPRINE [Concomitant]
  3. ATORVASTATIN CALCIUM [Concomitant]
  4. SERTRALINE [Concomitant]
  5. FERROGRADUMET (FERROUS SULFATE) [Concomitant]

REACTIONS (3)
  - BRONCHIECTASIS [None]
  - HAEMOGLOBIN DECREASED [None]
  - PNEUMONITIS [None]
